FAERS Safety Report 6680397-2 (Version None)
Quarter: 2010Q2

REPORT INFORMATION
  Report Type: 
  Country: None (occurrence: None)
  Receive Date: 20100412
  Receipt Date: 20100407
  Transmission Date: 20101027
  Serious: Yes (Other)
  Sender: FDA-Public Use
  Company Number: 2010S1001821

PATIENT
  Age: 65 Year
  Sex: Female

DRUGS (2)
  1. PHOSPHOSODA FLAVOR NOT SPECIFIED [Suspect]
     Indication: COLONOSCOPY
     Dosage: 45 ML; X1; PO 45 ML; X1; PO
     Route: 048
     Dates: start: 20050501, end: 20050501
  2. PHOSPHOSODA FLAVOR NOT SPECIFIED [Suspect]
     Indication: COLONOSCOPY
     Dosage: 45 ML; X1; PO 45 ML; X1; PO
     Route: 048
     Dates: start: 20050502, end: 20050502

REACTIONS (1)
  - RENAL FAILURE CHRONIC [None]
